FAERS Safety Report 18472884 (Version 2)
Quarter: 2021Q1

REPORT INFORMATION
  Report Type: Other
  Country: AR (occurrence: AR)
  Receive Date: 20201106
  Receipt Date: 20210112
  Transmission Date: 20210419
  Serious: Yes (Other)
  Sender: FDA-Public Use
  Company Number: AR-ROCHE-2709099

PATIENT
  Age: 70 Year
  Sex: Female

DRUGS (4)
  1. XOLAIR [Suspect]
     Active Substance: OMALIZUMAB
     Indication: ASTHMA
     Route: 058
     Dates: start: 20200825
  2. SYMBICORT [Concomitant]
     Active Substance: BUDESONIDE\FORMOTEROL FUMARATE DIHYDRATE
     Indication: PRODUCT USED FOR UNKNOWN INDICATION
     Dosage: 160/4.5 APPROXIMATELY
     Route: 065
     Dates: start: 2016
  3. XOLAIR [Suspect]
     Active Substance: OMALIZUMAB
     Dosage: UNK
     Route: 065
     Dates: start: 20200923, end: 20201028
  4. DELTISONA [Concomitant]
     Active Substance: PREDNISONE
     Indication: ASTHMA
     Dosage: 32 MG
     Route: 065

REACTIONS (12)
  - Headache [Recovered/Resolved]
  - Hypertension [Unknown]
  - Pruritus [Unknown]
  - Discomfort [Not Recovered/Not Resolved]
  - Asthma [Unknown]
  - Limb discomfort [Unknown]
  - Swelling [Not Recovered/Not Resolved]
  - Feeling hot [Not Recovered/Not Resolved]
  - Rash pruritic [Recovering/Resolving]
  - Erythema [Not Recovered/Not Resolved]
  - Rash [Unknown]
  - Rash erythematous [Unknown]

NARRATIVE: CASE EVENT DATE: 20200825
